FAERS Safety Report 13191994 (Version 6)
Quarter: 2017Q2

REPORT INFORMATION
  Report Type: Spontaneous
  Country: US (occurrence: US)
  Receive Date: 20170207
  Receipt Date: 20170407
  Transmission Date: 20170830
  Serious: No
  Sender: FDA-Public Use
  Company Number: US-PFIZER INC-2017050235

PATIENT
  Age: 75 Year
  Sex: Female
  Weight: 76.43 kg

DRUGS (3)
  1. IBRANCE [Suspect]
     Active Substance: PALBOCICLIB
     Dosage: 100 MG, 1X/DAY
     Dates: start: 20170307
  2. IBRANCE [Suspect]
     Active Substance: PALBOCICLIB
     Indication: BREAST CANCER
     Dosage: 100 MG, CYCLIC, (ONCE A DAY FOR 21 DAYS AND OFF 7 DAYS)
  3. CALCIUM 600+D3 [Concomitant]
     Active Substance: CALCIUM CARBONATE\VITAMIN D
     Dosage: 600 MG, DAILY (600 MG ONE TABLET A DAY)

REACTIONS (2)
  - Blood pressure decreased [Unknown]
  - Depressed mood [Recovered/Resolved]
